FAERS Safety Report 10196438 (Version 1)
Quarter: 2014Q2

REPORT INFORMATION
  Report Type: Spontaneous
  Country: NL (occurrence: NL)
  Receive Date: 20140527
  Receipt Date: 20140527
  Transmission Date: 20141212
  Serious: Yes (Hospitalization)
  Sender: FDA-Public Use
  Company Number: NL-ASTRAZENECA-2014SE34750

PATIENT
  Age: 83 Year
  Sex: Female
  Weight: 60 kg

DRUGS (5)
  1. OMEPRAZOL [Suspect]
     Indication: PROPHYLAXIS
     Route: 048
     Dates: start: 201311, end: 20140423
  2. ALENDRONINEZUUR [Concomitant]
     Route: 048
  3. ACETYLSALICYLZUUR [Concomitant]
     Route: 048
  4. LISINOPRIL [Concomitant]
     Route: 048
  5. CALCICHEW D3 KAUWTABLETTEN [Concomitant]
     Route: 048

REACTIONS (2)
  - Renal failure [Recovering/Resolving]
  - Tubulointerstitial nephritis [Recovering/Resolving]
